FAERS Safety Report 9769941 (Version 2)
Quarter: 2013Q4

REPORT INFORMATION
  Report Type: Spontaneous
  Country: US (occurrence: US)
  Receive Date: 20131218
  Receipt Date: 20131218
  Transmission Date: 20140711
  Serious: No
  Sender: FDA-Public Use
  Company Number: US-VERTEX PHARMACEUTICALS INC-AE-2011-000562

PATIENT
  Sex: 0

DRUGS (8)
  1. INCIVEK [Suspect]
     Indication: HEPATITIS C
     Route: 048
     Dates: start: 20110703
  2. RIBASPHERE [Concomitant]
     Indication: HEPATITIS C
     Dates: start: 20110703
  3. PEGASYS [Concomitant]
     Indication: HEPATITIS C
     Route: 058
     Dates: start: 20110703
  4. ADVIL [Concomitant]
     Route: 048
  5. SYNTHROID [Concomitant]
     Route: 048
  6. PREMARIN [Concomitant]
     Route: 048
  7. HYDROCHOLORTHIAZIDE [Concomitant]
     Route: 048
  8. CARDIZEM [Concomitant]
     Route: 048

REACTIONS (4)
  - Mouth ulceration [Recovered/Resolved]
  - Anaemia [Not Recovered/Not Resolved]
  - Diarrhoea [Recovered/Resolved]
  - Haemorrhoids [Not Recovered/Not Resolved]
